FAERS Safety Report 13952275 (Version 3)
Quarter: 2017Q4

REPORT INFORMATION
  Report Type: Report from Study
  Country: CA (occurrence: CA)
  Receive Date: 20170911
  Receipt Date: 20171202
  Transmission Date: 20180320
  Serious: Yes (Hospitalization, Other)
  Sender: FDA-Public Use
  Company Number: CA-ROCHE-1615448

PATIENT
  Age: 79 Year
  Sex: Female
  Weight: 68.8 kg

DRUGS (17)
  1. ACTEMRA [Suspect]
     Active Substance: TOCILIZUMAB
     Route: 042
     Dates: start: 20160729
  2. ACTEMRA [Suspect]
     Active Substance: TOCILIZUMAB
     Route: 042
     Dates: start: 201702
  3. ACTEMRA [Suspect]
     Active Substance: TOCILIZUMAB
     Indication: RHEUMATOID ARTHRITIS
     Route: 042
     Dates: start: 20150213
  4. ACTEMRA [Suspect]
     Active Substance: TOCILIZUMAB
     Route: 042
     Dates: start: 20160830
  5. ACTEMRA [Suspect]
     Active Substance: TOCILIZUMAB
     Route: 042
     Dates: start: 20161024
  6. COUMADINE [Suspect]
     Active Substance: WARFARIN SODIUM
     Indication: PRODUCT USED FOR UNKNOWN INDICATION
     Route: 065
     Dates: start: 2012
  7. FORTEO [Suspect]
     Active Substance: TERIPARATIDE
     Indication: PRODUCT USED FOR UNKNOWN INDICATION
     Route: 065
  8. LOSEC [Concomitant]
     Active Substance: OMEPRAZOLE
  9. ACTEMRA [Suspect]
     Active Substance: TOCILIZUMAB
     Route: 042
     Dates: start: 20160928
  10. ACTEMRA [Suspect]
     Active Substance: TOCILIZUMAB
     Route: 042
     Dates: start: 20161122
  11. COLACE [Concomitant]
     Active Substance: DOCUSATE SODIUM
  12. BISOPROLOL [Concomitant]
     Active Substance: BISOPROLOL
  13. PLAQUENIL [Concomitant]
     Active Substance: HYDROXYCHLOROQUINE SULFATE
  14. PREDNISONE. [Suspect]
     Active Substance: PREDNISONE
     Indication: PRODUCT USED FOR UNKNOWN INDICATION
     Route: 065
  15. ACTEMRA [Suspect]
     Active Substance: TOCILIZUMAB
     Route: 042
     Dates: start: 20161220
  16. ACTEMRA [Suspect]
     Active Substance: TOCILIZUMAB
     Route: 042
     Dates: start: 201704, end: 20170418
  17. ACTEMRA [Suspect]
     Active Substance: TOCILIZUMAB
     Route: 042
     Dates: start: 201703

REACTIONS (20)
  - Osteomyelitis [Unknown]
  - Adenocarcinoma of colon [Recovering/Resolving]
  - Diarrhoea [Unknown]
  - Gastroenteritis [Recovered/Resolved]
  - Haemoglobin decreased [Unknown]
  - Contusion [Not Recovered/Not Resolved]
  - Hepatic enzyme increased [Unknown]
  - Drug dispensing error [Unknown]
  - Arterial disorder [Unknown]
  - Wound infection [Recovering/Resolving]
  - International normalised ratio increased [Recovering/Resolving]
  - Pain in extremity [Unknown]
  - Rheumatoid vasculitis [Unknown]
  - Hepatic cancer [Unknown]
  - Musculoskeletal pain [Unknown]
  - Heart rate decreased [Unknown]
  - Nausea [Unknown]
  - Incorrect dose administered [Unknown]
  - Weight increased [Unknown]
  - Colon cancer [Unknown]

NARRATIVE: CASE EVENT DATE: 2015
